FAERS Safety Report 6859882-6 (Version None)
Quarter: 2010Q3

REPORT INFORMATION
  Report Type: 
  Country: None (occurrence: None)
  Receive Date: 20100720
  Receipt Date: 20100713
  Transmission Date: 20110219
  Serious: Yes (Other)
  Sender: FDA-Public Use
  Company Number: FR-JNJFOC-20100704821

PATIENT
  Age: 46 Year
  Sex: Male

DRUGS (1)
  1. INFLIXIMAB, RECOMBINANT [Suspect]
     Indication: ANKYLOSING SPONDYLITIS
     Dosage: 38 OR 39 INFUSIONS
     Route: 042

REACTIONS (2)
  - ARTHRALGIA [None]
  - CRYSTAL URINE PRESENT [None]
